FAERS Safety Report 5642877-8 (Version None)
Quarter: 2008Q1

REPORT INFORMATION
  Report Type: 
  Country: None (occurrence: None)
  Receive Date: 20080228
  Receipt Date: 20080222
  Transmission Date: 20080703
  Serious: Yes (Other)
  Sender: FDA-Public Use
  Company Number: PHHY2008JP01373

PATIENT
  Age: 45 Year
  Sex: Male

DRUGS (1)
  1. LAMISIL [Suspect]
     Dosage: UNK, UNK
     Route: 048

REACTIONS (3)
  - FOOT FRACTURE [None]
  - IMPAIRED HEALING [None]
  - ROAD TRAFFIC ACCIDENT [None]
